FAERS Safety Report 5706625-5 (Version None)
Quarter: 2008Q2

REPORT INFORMATION
  Report Type: 
  Country: None (occurrence: None)
  Receive Date: 20080414
  Receipt Date: 20080402
  Transmission Date: 20081010
  Serious: Yes (Hospitalization)
  Sender: FDA-Public Use
  Company Number: POMP-10996

PATIENT
  Age: 7 Month
  Sex: Male
  Weight: 5.3 kg

DRUGS (8)
  1. MYOZYME (ALGLUCOSIDASE ALFA) POWDER FOR SOLUTION FOR INFUSION [Suspect]
     Indication: GLYCOGEN STORAGE DISEASE TYPE II
     Dosage: 20 MG/KG, Q2W, INTRAVENOUS
     Route: 042
     Dates: start: 20060911
  2. MYOZYME (ALGLUCOSIDASE ALFA) POWDER FOR SOLUTION FOR INFUSION [Suspect]
  3. MYOZYME (ALGLUCOSIDASE ALFA) POWDER FOR SOLUTION FOR INFUSION [Suspect]
  4. BACTRIM [Concomitant]
  5. RITUXIMAB (RITUXIMAB) [Concomitant]
  6. METHOTREXATE [Concomitant]
  7. BENADRYL [Concomitant]
  8. ACETAMINOPHEN [Concomitant]

REACTIONS (13)
  - BACTERAEMIA [None]
  - BACTERIA STOOL IDENTIFIED [None]
  - BRONCHIAL HYPERREACTIVITY [None]
  - CATHETER RELATED INFECTION [None]
  - CENTRAL LINE INFECTION [None]
  - CLOSTRIDIAL INFECTION [None]
  - ENTEROBACTER INFECTION [None]
  - EYELID DISORDER [None]
  - LOBAR PNEUMONIA [None]
  - NYSTAGMUS [None]
  - PARAINFLUENZAE VIRUS INFECTION [None]
  - RESPIRATORY DISTRESS [None]
  - STAPHYLOCOCCAL INFECTION [None]
